FAERS Safety Report 5115812-9 (Version None)
Quarter: 2006Q3

REPORT INFORMATION
  Report Type: 
  Country: None (occurrence: None)
  Receive Date: 20060927
  Receipt Date: 20060919
  Transmission Date: 20061208
  Serious: Yes (Other)
  Sender: FDA-Public Use
  Company Number: US-JNJFOC-20060806907

PATIENT
  Sex: Female

DRUGS (8)
  1. REMICADE [Suspect]
     Indication: IRITIS
     Route: 042
  2. REMICADE [Suspect]
     Indication: UVEITIS
     Route: 042
  3. REMICADE [Suspect]
     Indication: RHEUMATOID ARTHRITIS
     Route: 042
  4. PREDNISONE [Concomitant]
  5. METHOTREXATE [Concomitant]
  6. POTASSIUM CHLORIDE [Concomitant]
  7. DILTIAZEM HCL [Concomitant]
  8. NEXIUM [Concomitant]

REACTIONS (1)
  - INFLAMMATORY CARCINOMA OF THE BREAST [None]
